FAERS Safety Report 8164543-X (Version None)
Quarter: 2012Q1

REPORT INFORMATION
  Report Type: 
  Country: None (occurrence: None)
  Receive Date: 20120225
  Receipt Date: 20120215
  Transmission Date: 20120608
  Serious: Yes (Congenital Anomaly, Other)
  Sender: FDA-Public Use
  Company Number: DE-ACCORD-012461

PATIENT

DRUGS (5)
  1. PREDNISONE [Concomitant]
     Route: 064
  2. AZATHIOPRINE [Concomitant]
     Route: 064
  3. FOSFOMYCIN [Concomitant]
     Dosage: EXPOSED ON WEEK 14
     Route: 064
  4. TACROLIMUS [Concomitant]
     Route: 064
  5. MYCOPHENOLATE MOFETIL [Suspect]
     Indication: RENAL TRANSPLANT
     Dosage: MMF EXPOSURE (WEEKS) 0-8 + 25-36
     Route: 064

REACTIONS (3)
  - FOETAL EXPOSURE TIMING UNSPECIFIED [None]
  - CONGENITAL HYDRONEPHROSIS [None]
  - AUTISM [None]
